FAERS Safety Report 4817630-5 (Version None)
Quarter: 2005Q4

REPORT INFORMATION
  Report Type: 
  Country: None (occurrence: None)
  Receive Date: 20051019
  Receipt Date: 20050304
  Transmission Date: 20060501
  Serious: Yes (Other)
  Sender: FDA-Public Use
  Company Number: PHEH2005US02770

PATIENT
  Age: 76 Year
  Sex: Female

DRUGS (2)
  1. MIACALCIN [Suspect]
     Indication: OSTEOPOROSIS
     Dosage: 200 IU, QD, NASAL
     Route: 045
     Dates: start: 20020801, end: 20041201
  2. FOSAMAX [Concomitant]

REACTIONS (2)
  - NASAL DISORDER [None]
  - PNEUMONIA [None]
